FAERS Safety Report 12839590 (Version 1)
Quarter: 2016Q4

REPORT INFORMATION
  Report Type: Spontaneous
  Country: FR (occurrence: FR)
  Receive Date: 20161012
  Receipt Date: 20161012
  Transmission Date: 20170207
  Serious: Yes (Hospitalization)
  Sender: FDA-Public Use
  Company Number: FR-SA-2016SA182850

PATIENT
  Age: 68 Year
  Sex: Male

DRUGS (9)
  1. MAGNESIUM SULFATE. [Suspect]
     Active Substance: MAGNESIUM SULFATE
     Indication: COLON CANCER
     Route: 042
     Dates: start: 20160906, end: 20160906
  2. CALCIUM GLUCONATE ^AGUETTANT^ [Suspect]
     Active Substance: CALCIUM GLUCONATE
     Indication: COLON CANCER
     Route: 042
     Dates: start: 20160906, end: 20160906
  3. ZOPHREN [Concomitant]
     Active Substance: ONDANSETRON
     Route: 042
  4. ELOXATIN [Suspect]
     Active Substance: OXALIPLATIN
     Indication: COLON CANCER
     Dosage: 100MG, LYOPHILISATE FOR INFUSION?ROUTE- INTRAVENOUS INFUSION
     Dates: start: 20160906, end: 20160906
  5. AVASTIN [Concomitant]
     Active Substance: BEVACIZUMAB
     Route: 042
  6. METHYLPREDNISOLONE. [Concomitant]
     Active Substance: METHYLPREDNISOLONE
     Route: 042
  7. CALCIUM FOLINATE [Suspect]
     Active Substance: LEUCOVORIN CALCIUM
     Indication: COLON CANCER
     Dosage: ROUTE- IV INFUSION
     Dates: start: 20160906, end: 20160906
  8. ATROPINE SULFATE. [Suspect]
     Active Substance: ATROPINE SULFATE
     Indication: COLON CANCER
     Dosage: ROUTE- IV INFUSION
     Route: 042
     Dates: start: 20160906, end: 20160906
  9. IRINOTECAN [Suspect]
     Active Substance: IRINOTECAN
     Indication: COLON CANCER
     Dosage: ROUTE-IV INFUSION?FORM-SOLUTION FOR INFUSION
     Dates: start: 20160906, end: 20160906

REACTIONS (5)
  - Tremor [Recovered/Resolved]
  - Tachycardia [None]
  - Blood pressure increased [Recovered/Resolved]
  - Pyrexia [Recovered/Resolved]
  - Malaise [Recovered/Resolved]

NARRATIVE: CASE EVENT DATE: 20160906
